FAERS Safety Report 12655723 (Version 2)
Quarter: 2016Q4

REPORT INFORMATION
  Report Type: Spontaneous
  Country: US (occurrence: US)
  Receive Date: 20160816
  Receipt Date: 20161003
  Transmission Date: 20170207
  Serious: No
  Sender: FDA-Public Use
  Company Number: US-PFIZER INC-2016362538

PATIENT
  Sex: Female

DRUGS (2)
  1. PREMARIN [Suspect]
     Active Substance: ESTROGENS, CONJUGATED
     Dosage: UNK
  2. PREMARIN [Suspect]
     Active Substance: ESTROGENS, CONJUGATED
     Dosage: 1.25 MG, UNK

REACTIONS (6)
  - Nasal congestion [Unknown]
  - Emotional disorder [Unknown]
  - Pain [Unknown]
  - Hormone level abnormal [Unknown]
  - Dizziness [Unknown]
  - Nausea [Unknown]
